FAERS Safety Report 16825807 (Version 1)
Quarter: 2019Q3

REPORT INFORMATION
  Report Type: Spontaneous
  Country: GB (occurrence: GB)
  Receive Date: 20190919
  Receipt Date: 20190919
  Transmission Date: 20191005
  Serious: Yes (Other)
  Sender: FDA-Public Use
  Company Number: GB-TEVA-2019-GB-1109074

PATIENT
  Age: 56 Year
  Sex: Female
  Weight: 79.82 kg

DRUGS (1)
  1. AMOXICILLIN. [Suspect]
     Active Substance: AMOXICILLIN
     Indication: OSTEOMYELITIS
     Dosage: 500 MG
     Route: 048
     Dates: start: 20190103, end: 20190221

REACTIONS (6)
  - Respiration abnormal [Not Recovered/Not Resolved]
  - Wheezing [Unknown]
  - Dyspnoea [Not Recovered/Not Resolved]
  - Cough [Unknown]
  - Throat tightness [Unknown]
  - Fatigue [Unknown]

NARRATIVE: CASE EVENT DATE: 20190103
